FAERS Safety Report 4806610-1 (Version None)
Quarter: 2005Q4

REPORT INFORMATION
  Report Type: 
  Country: None (occurrence: None)
  Receive Date: 20051019
  Receipt Date: 20051006
  Transmission Date: 20060501
  Serious: Yes (Hospitalization, Other)
  Sender: FDA-Public Use
  Company Number: 2003115816

PATIENT
  Age: 50 Year
  Sex: Male
  Weight: 86.1834 kg

DRUGS (1)
  1. VIAGRA [Suspect]
     Indication: ERECTILE DYSFUNCTION
     Dosage: 50 MG (50 MG, 1 TO 2 TIMES A MONTH), ORAL
     Route: 048

REACTIONS (8)
  - CARDIAC FAILURE CONGESTIVE [None]
  - DEPRESSION [None]
  - EJECTION FRACTION DECREASED [None]
  - HYPERPHAGIA [None]
  - LUNG INFECTION [None]
  - NOCARDIOSIS [None]
  - PROCEDURAL COMPLICATION [None]
  - RESPIRATORY ARREST [None]
